FAERS Safety Report 12886596 (Version 5)
Quarter: 2016Q4

REPORT INFORMATION
  Report Type: Spontaneous
  Country: US (occurrence: US)
  Receive Date: 20161026
  Receipt Date: 20161208
  Transmission Date: 20170207
  Serious: Yes (Other)
  Sender: FDA-Public Use
  Company Number: US-PFIZER INC-2016499315

PATIENT
  Age: 65 Year
  Sex: Female

DRUGS (6)
  1. RELPAX [Suspect]
     Active Substance: ELETRIPTAN HYDROBROMIDE
     Indication: MIGRAINE
     Dosage: 40 MG, UNK
     Dates: start: 2002
  2. FLECTOR [Suspect]
     Active Substance: DICLOFENAC EPOLAMINE
     Indication: PAIN
  3. FLEXERIL [Concomitant]
     Active Substance: CYCLOBENZAPRINE HYDROCHLORIDE
     Dosage: UNK
  4. FLECTOR [Suspect]
     Active Substance: DICLOFENAC EPOLAMINE
     Indication: SCOLIOSIS
  5. FLECTOR [Suspect]
     Active Substance: DICLOFENAC EPOLAMINE
     Indication: NEURALGIA
     Dosage: UNK
  6. BUTALBITAL, ACETAMINOPHEN, AND CAFFEINE [Concomitant]
     Active Substance: ACETAMINOPHEN\BUTALBITAL\CAFFEINE
     Dosage: UNK

REACTIONS (6)
  - Burning sensation [Unknown]
  - Migraine [Unknown]
  - Neuralgia [Unknown]
  - Scoliosis [Unknown]
  - Myalgia [Unknown]
  - Nerve injury [Unknown]
